FAERS Safety Report 10374395 (Version 1)
Quarter: 2014Q3

REPORT INFORMATION
  Report Type: Spontaneous
  Country: US (occurrence: US)
  Receive Date: 20140811
  Receipt Date: 20140811
  Transmission Date: 20150326
  Serious: No
  Sender: FDA-Public Use
  Company Number: US-DRREDDYS-USA/USA/14/0040092

PATIENT
  Age: 8 Year
  Sex: Male

DRUGS (1)
  1. AMOXICILLIN W/CLAVULANATE POTASSIUM ES-600 POWDER FOR ORAL SUSPENSION [Suspect]
     Active Substance: AMOXICILLIN\CLAVULANATE POTASSIUM
     Indication: EYE INFECTION
     Dosage: 1 TEASPOONFUL TWICE DAILY
     Route: 048
     Dates: start: 20140429, end: 20140430

REACTIONS (2)
  - Rash pruritic [Not Recovered/Not Resolved]
  - Rash erythematous [Not Recovered/Not Resolved]

NARRATIVE: CASE EVENT DATE: 20140430
